FAERS Safety Report 4557193-5 (Version None)
Quarter: 2005Q1

REPORT INFORMATION
  Report Type: 
  Country: None (occurrence: None)
  Receive Date: 20050118
  Receipt Date: 20050106
  Transmission Date: 20050727
  Serious: Yes (Hospitalization)
  Sender: FDA-Public Use
  Company Number: ZONI002049

PATIENT
  Age: 22 Year
  Sex: Female

DRUGS (3)
  1. EXCEGRAN (ZONISAMIDE) [Suspect]
     Indication: EPILEPSY
     Dosage: 400 MG, 1 IN 1 D, ORAL
     Route: 048
     Dates: start: 20040318, end: 20040504
  2. DEPAKENE [Suspect]
     Indication: EPILEPSY
     Dosage: 400 MG, 1 IN 1 D, ORAL
     Route: 048
     Dates: start: 20020101, end: 20020504
  3. DEPAKENE [Suspect]
     Indication: EPILEPSY
     Dates: start: 20020101, end: 20020504

REACTIONS (9)
  - ALANINE AMINOTRANSFERASE INCREASED [None]
  - APHTHOUS STOMATITIS [None]
  - ASPARTATE AMINOTRANSFERASE INCREASED [None]
  - BLOOD PRESSURE DIASTOLIC DECREASED [None]
  - DRUG HYPERSENSITIVITY [None]
  - HERPES VIRUS INFECTION [None]
  - LYMPHADENOPATHY [None]
  - RUBELLA [None]
  - STEVENS-JOHNSON SYNDROME [None]
